APPROVED DRUG PRODUCT: DEPO-PROVERA
Active Ingredient: MEDROXYPROGESTERONE ACETATE
Strength: 150MG/ML
Dosage Form/Route: INJECTABLE;INJECTION
Application: N020246 | Product #001 | TE Code: AB
Applicant: PFIZER INC
Approved: Oct 29, 1992 | RLD: Yes | RS: Yes | Type: RX